FAERS Safety Report 25360920 (Version 1)
Quarter: 2025Q2

REPORT INFORMATION
  Report Type: Spontaneous
  Country: GB (occurrence: GB)
  Receive Date: 20250527
  Receipt Date: 20250527
  Transmission Date: 20250717
  Serious: Yes (Other)
  Sender: NOVO NORDISK
  Company Number: None

PATIENT
  Age: 40 Year
  Sex: Male

DRUGS (4)
  1. RYBELSUS [Suspect]
     Active Substance: SEMAGLUTIDE
     Indication: Type 2 diabetes mellitus
  2. METFORMIN [Concomitant]
     Active Substance: METFORMIN HYDROCHLORIDE
  3. FEXOFENADINE [Concomitant]
     Active Substance: FEXOFENADINE HYDROCHLORIDE
  4. LANSOPRAZOLE [Concomitant]
     Active Substance: LANSOPRAZOLE

REACTIONS (4)
  - Brain fog [Not Recovered/Not Resolved]
  - Malaise [Not Recovered/Not Resolved]
  - Electric shock sensation [Not Recovered/Not Resolved]
  - Feeling abnormal [Unknown]
